FAERS Safety Report 4396648-3 (Version None)
Quarter: 2004Q3

REPORT INFORMATION
  Report Type: 
  Country: None (occurrence: None)
  Receive Date: 20040709
  Receipt Date: 20040630
  Transmission Date: 20050211
  Serious: Yes (Hospitalization)
  Sender: FDA-Public Use
  Company Number: 205451

PATIENT
  Age: 35 Year
  Sex: Female

DRUGS (2)
  1. EFALIZUMAB OR PLACEBO(EFALIZUMAB OR PLACEBO) PWDR + SOLVENT, INJECTION [Suspect]
     Indication: PSORIASIS
     Dosage: 1 MG/KG, 1/WEEK, SUBCUTANEOUS
     Route: 058
     Dates: start: 20030530, end: 20030626
  2. CARBIMAZOLE (CARBIMAZOLE) [Concomitant]

REACTIONS (5)
  - ECZEMA [None]
  - ERYTHEMA [None]
  - OEDEMA PERIPHERAL [None]
  - PHOTOSENSITIVITY REACTION [None]
  - RASH [None]
